FAERS Safety Report 9978915 (Version 1)
Quarter: 2014Q1

REPORT INFORMATION
  Report Type: Report from Study
  Country: US (occurrence: US)
  Receive Date: 20140306
  Receipt Date: 20140306
  Transmission Date: 20141002
  Serious: No
  Sender: FDA-Public Use
  Company Number: US-ABBVIE-13P-163-1172015-00

PATIENT
  Sex: Male

DRUGS (5)
  1. HUMIRA [Suspect]
     Indication: COLITIS ULCERATIVE
     Dates: start: 20130826
  2. TOPROL [Concomitant]
     Indication: CARDIOVASCULAR DISORDER
  3. CRESTOR [Concomitant]
     Indication: BLOOD CHOLESTEROL
  4. LIALDA [Concomitant]
     Indication: COLITIS ULCERATIVE
  5. PLAVIX [Concomitant]
     Indication: ANTICOAGULANT THERAPY

REACTIONS (1)
  - Colitis ulcerative [Unknown]
